FAERS Safety Report 9880265 (Version 2)
Quarter: 2014Q1

REPORT INFORMATION
  Report Type: Spontaneous
  Country: DE (occurrence: DE)
  Receive Date: 20140207
  Receipt Date: 20140226
  Transmission Date: 20141002
  Serious: Yes (Other)
  Sender: FDA-Public Use
  Company Number: DE-BRISTOL-MYERS SQUIBB COMPANY-20101440

PATIENT
  Age: 72 Year
  Sex: Male

DRUGS (2)
  1. ELIQUIS [Suspect]
     Dosage: INITIALLY 2 X 5 MG ?REDUCED TO 2 X 2.5MG
  2. CLEXANE [Concomitant]

REACTIONS (3)
  - Osteoarthritis [Unknown]
  - Groin pain [Unknown]
  - Fibrin D dimer increased [Unknown]
